FAERS Safety Report 6567015-9 (Version None)
Quarter: 2010Q1

REPORT INFORMATION
  Report Type: 
  Country: None (occurrence: None)
  Receive Date: 20100127
  Receipt Date: 20100112
  Transmission Date: 20100710
  Serious: Yes (Death, Hospitalization)
  Sender: FDA-Public Use
  Company Number: 004444

PATIENT

DRUGS (5)
  1. ACETAMINOPHEN W/ CODEINE [Suspect]
  2. CHLORAL HYDRATE (CHLORAL HYDRATE) [Suspect]
  3. CODEINE SUL TAB [Suspect]
  4. DIAZEPAM [Suspect]
  5. METHOTREXATE [Concomitant]

REACTIONS (8)
  - AREFLEXIA [None]
  - CEREBROVASCULAR ACCIDENT [None]
  - DEPRESSION [None]
  - LOSS OF CONSCIOUSNESS [None]
  - MULTIPLE DRUG OVERDOSE INTENTIONAL [None]
  - OBSTRUCTIVE AIRWAYS DISORDER [None]
  - RESPIRATORY DISORDER [None]
  - SUICIDE ATTEMPT [None]
